FAERS Safety Report 8193437 (Version 2)
Quarter: 2012Q4

REPORT INFORMATION
  Report Type: 
  Country: GB (occurrence: GB)
  Receive Date: 20111021
  Receipt Date: 20121002
  Transmission Date: 20130627
  Serious: Yes (Disabling, Other)
  Sender: FDA-Public Use
  Company Number: GB-PFIZER INC-2011191806

PATIENT
  Age: 28 Year
  Sex: Female
  Weight: 130 kg

DRUGS (5)
  1. LIPITOR [Suspect]
     Indication: TYPE IIA HYPERLIPIDAEMIA
     Dosage: 40 mg, 1x/day at night
     Route: 048
     Dates: start: 20110701, end: 20110703
  2. AMITRIPTYLINE [Concomitant]
     Indication: ANXIETY
     Dosage: 10-60 mg unit dose
     Route: 048
     Dates: start: 20090203
  3. OMACOR [Concomitant]
     Indication: LIPIDS ABNORMAL
     Dosage: 1000 mg, 2x/day
     Route: 048
     Dates: start: 20091221
  4. FLUTICASONE PROPIONATE [Concomitant]
     Indication: ASTHMA
     Dosage: 2 DF, at night
     Route: 055
     Dates: start: 20100126
  5. VENTOLIN [Concomitant]
     Indication: ASTHMA
     Dosage: UNK, as needed
     Route: 055
     Dates: start: 20100827

REACTIONS (3)
  - Multiple sclerosis [Not Recovered/Not Resolved]
  - Paraesthesia [Not Recovered/Not Resolved]
  - Feeling cold [Recovering/Resolving]
